FAERS Safety Report 4532038-8 (Version None)
Quarter: 2004Q4

REPORT INFORMATION
  Report Type: 
  Country: None (occurrence: None)
  Receive Date: 20041220
  Receipt Date: 20041116
  Transmission Date: 20050328
  Serious: Yes (Other)
  Sender: FDA-Public Use
  Company Number: JP-GLAXOSMITHKLINE-B0357468A

PATIENT
  Age: 2 Year
  Sex: Female
  Weight: 10 kg

DRUGS (4)
  1. FLUTICASONE PROPIONATE [Suspect]
     Indication: ASTHMA
     Route: 055
     Dates: start: 20040220
  2. METHYLPREDNISOLONE SODIUM SUCCINATE [Suspect]
     Dosage: 10MG TWICE PER DAY
     Route: 042
     Dates: start: 20040206, end: 20040210
  3. PREDNISOLONE [Concomitant]
     Indication: ASTHMA
     Route: 048
     Dates: start: 20040211
  4. PREDONINE [Concomitant]
     Indication: ASTHMA
     Dosage: 20MG PER DAY
     Route: 042
     Dates: start: 20040204

REACTIONS (7)
  - ADRENAL INSUFFICIENCY [None]
  - ADRENAL SUPPRESSION [None]
  - BLOOD ELECTROLYTES ABNORMAL [None]
  - CONVULSION [None]
  - DIARRHOEA [None]
  - PYREXIA [None]
  - VOMITING [None]
